FAERS Safety Report 8466747-5 (Version None)
Quarter: 2012Q2

REPORT INFORMATION
  Report Type: 
  Country: None (occurrence: None)
  Receive Date: 20120626
  Receipt Date: 20120620
  Transmission Date: 20120825
  Serious: No
  Sender: FDA-Public Use
  Company Number: US-PFIZER INC-2012149148

PATIENT
  Sex: Female

DRUGS (1)
  1. PREMARIN [Suspect]
     Dosage: UNK
     Route: 067

REACTIONS (7)
  - SWELLING [None]
  - HAIR GROWTH ABNORMAL [None]
  - VOMITING [None]
  - ABDOMINAL DISTENSION [None]
  - NAUSEA [None]
  - MUSCLE SPASMS [None]
  - HEADACHE [None]
